FAERS Safety Report 15590547 (Version 1)
Quarter: 2018Q4

REPORT INFORMATION
  Report Type: Spontaneous
  Country: KR (occurrence: KR)
  Receive Date: 20181106
  Receipt Date: 20181106
  Transmission Date: 20190205
  Serious: Yes (Other)
  Sender: FDA-Public Use
  Company Number: KR-GUERBET-KR-20180029

PATIENT
  Age: 71 Year
  Sex: Male

DRUGS (3)
  1. LIPIODOL [Suspect]
     Active Substance: ETHIODIZED OIL
     Indication: TRANSCATHETER ARTERIAL CHEMOEMBOLISATION
     Route: 013
  2. CISPLATIN. [Concomitant]
     Active Substance: CISPLATIN
     Indication: TRANSCATHETER ARTERIAL CHEMOEMBOLISATION
     Route: 013
  3. CISPLATIN. [Concomitant]
     Active Substance: CISPLATIN
     Indication: TRANSCATHETER ARTERIAL CHEMOEMBOLISATION
     Dosage: IN EMULSION WITH LIPIODOL
     Route: 013

REACTIONS (3)
  - Embolic cerebral infarction [Recovered/Resolved]
  - Cerebral infarction [Recovered/Resolved]
  - Cerebellar infarction [Recovered/Resolved]
